FAERS Safety Report 8966049 (Version 8)
Quarter: 2015Q4

REPORT INFORMATION
  Report Type: Spontaneous
  Country: US (occurrence: US)
  Receive Date: 20121217
  Receipt Date: 20151215
  Transmission Date: 20160305
  Serious: No
  Sender: FDA-Public Use
  Company Number: US-PFIZER INC-2012313843

PATIENT
  Age: 42 Year
  Sex: Male
  Weight: 91 kg

DRUGS (6)
  1. DETROL LA [Concomitant]
     Active Substance: TOLTERODINE TARTRATE
     Dosage: 10 MG, 1X/DAY
  2. VIAGRA [Suspect]
     Active Substance: SILDENAFIL CITRATE
     Indication: ERECTILE DYSFUNCTION
     Dosage: 50 MG, UNK (TAKE 1 HOUR BEFORE INTERCOURSE)
     Dates: start: 2008
  3. DETROL [Concomitant]
     Active Substance: TOLTERODINE TARTRATE
     Indication: HYPERTONIC BLADDER
     Dosage: 5 MG, 1X/DAY
     Route: 048
  4. VIAGRA [Suspect]
     Active Substance: SILDENAFIL CITRATE
     Dosage: 100 MG, UNK
  5. VIAGRA [Suspect]
     Active Substance: SILDENAFIL CITRATE
     Dosage: 10 MG, AS NEEDED
     Dates: start: 200510, end: 201003
  6. DETROL LA [Concomitant]
     Active Substance: TOLTERODINE TARTRATE
     Indication: POLLAKIURIA
     Dosage: 4MG, ONCE A DAY
     Dates: start: 201007, end: 201108

REACTIONS (2)
  - Drug ineffective [Not Recovered/Not Resolved]
  - Hypertonic bladder [Not Recovered/Not Resolved]

NARRATIVE: CASE EVENT DATE: 200510
